FAERS Safety Report 16788265 (Version 1)
Quarter: 2019Q3

REPORT INFORMATION
  Report Type: Spontaneous
  Country: BR (occurrence: BR)
  Receive Date: 20190910
  Receipt Date: 20190910
  Transmission Date: 20191005
  Serious: Yes (Other)
  Sender: FDA-Public Use
  Company Number: BR-TEVA-2019-BR-1106262

PATIENT
  Sex: Female

DRUGS (1)
  1. COPAXONE [Suspect]
     Active Substance: GLATIRAMER ACETATE
     Dosage: COPAXONE 40 MG/ML

REACTIONS (4)
  - Hemianaesthesia [Unknown]
  - Headache [Recovered/Resolved]
  - Nausea [Unknown]
  - Injection site erythema [Unknown]

NARRATIVE: CASE EVENT DATE: 201810
